FAERS Safety Report 9610253 (Version 2)
Quarter: 2013Q4

REPORT INFORMATION
  Report Type: Spontaneous
  Country: US (occurrence: US)
  Receive Date: 20131009
  Receipt Date: 20131011
  Transmission Date: 20140711
  Serious: Yes (Hospitalization)
  Sender: FDA-Public Use
  Company Number: US-GILEAD-2013-0085010

PATIENT
  Sex: Female

DRUGS (3)
  1. LETAIRIS [Suspect]
     Indication: PRODUCT USED FOR UNKNOWN INDICATION
     Dosage: 5 MG, QD
     Route: 048
     Dates: start: 20130924, end: 20131003
  2. WARFARIN [Concomitant]
  3. ADCIRCA [Concomitant]

REACTIONS (3)
  - Pleural effusion [Unknown]
  - Unevaluable event [Unknown]
  - Dyspnoea [Unknown]
